FAERS Safety Report 19271886 (Version 1)
Quarter: 2021Q2

REPORT INFORMATION
  Report Type: Spontaneous
  Country: US (occurrence: US)
  Receive Date: 20210519
  Receipt Date: 20210519
  Transmission Date: 20210717
  Serious: No
  Sender: FDA-Public Use
  Company Number: US-NOVEN PHARMACEUTICALS, INC.-2020US006049

PATIENT
  Age: 7 Year
  Sex: Male

DRUGS (4)
  1. DAYTRANA [Suspect]
     Active Substance: METHYLPHENIDATE
     Dosage: 10MG/9 HOURS, 1 PATCH DAILY
     Route: 062
  2. DAYTRANA [Suspect]
     Active Substance: METHYLPHENIDATE
     Dosage: 13 MG/9 HOURS, PATCH CUT TO MAKE 13 MG
     Route: 062
  3. DAYTRANA [Suspect]
     Active Substance: METHYLPHENIDATE
     Indication: PRODUCT USED FOR UNKNOWN INDICATION
     Dosage: 15 MG/9 HOURS, 1 PATCH DAILY
     Route: 062
  4. DAYTRANA [Suspect]
     Active Substance: METHYLPHENIDATE
     Dosage: 15MG/9 HOURS, 1 PATCH DAILY
     Route: 062

REACTIONS (2)
  - Abnormal behaviour [Recovered/Resolved]
  - Off label use [Recovered/Resolved]
